FAERS Safety Report 13472096 (Version 1)
Quarter: 2017Q2

REPORT INFORMATION
  Report Type: Spontaneous
  Country: US (occurrence: US)
  Receive Date: 20170422
  Receipt Date: 20170422
  Transmission Date: 20170830
  Serious: Yes (Disabling)
  Sender: FDA-Public Use
  Company Number: None

PATIENT
  Age: 59 Year
  Sex: Female
  Weight: 92.7 kg

DRUGS (12)
  1. VITAMEN D3 [Concomitant]
  2. DEXTRAMETHAMPHETAMINE [Concomitant]
  3. NITROFURANTOIN MONOHYDRATE MACROCRYSTALS [Suspect]
     Active Substance: NITROFURANTOIN\NITROFURANTOIN MONOHYDRATE
     Indication: URINARY TRACT INFECTION
     Dosage: ?          QUANTITY:14 TABLET(S);?
     Route: 048
     Dates: start: 20161017, end: 20161020
  4. MSM [Concomitant]
     Active Substance: DIMETHYL SULFONE
  5. GLUCOSAMINE SULFATE [Concomitant]
     Active Substance: GLUCOSAMINE SULFATE
  6. CYRODERM [Concomitant]
  7. HYDROCODONE [Concomitant]
     Active Substance: HYDROCODONE
  8. LIQUID B-COMPLEX [Concomitant]
  9. CYMBALTA [Concomitant]
     Active Substance: DULOXETINE HYDROCHLORIDE
  10. LUNESTA [Concomitant]
     Active Substance: ESZOPICLONE
  11. VOLTAREN [Concomitant]
     Active Substance: DICLOFENAC SODIUM
  12. MELATONION [Concomitant]

REACTIONS (8)
  - Eye pain [None]
  - Fatigue [None]
  - Gastritis [None]
  - Abdominal pain upper [None]
  - Influenza like illness [None]
  - Lip ulceration [None]
  - Ocular hyperaemia [None]
  - Eye swelling [None]

NARRATIVE: CASE EVENT DATE: 20161017
